FAERS Safety Report 5486685-X (Version None)
Quarter: 2007Q4

REPORT INFORMATION
  Report Type: 
  Country: None (occurrence: None)
  Receive Date: 20071016
  Receipt Date: 20071005
  Transmission Date: 20080405
  Serious: Yes (Hospitalization)
  Sender: FDA-Public Use
  Company Number: DK-JNJFOC-20070704105

PATIENT
  Age: 74 Year
  Sex: Female
  Weight: 65 kg

DRUGS (7)
  1. REMICADE [Suspect]
     Indication: RHEUMATOID ARTHRITIS
     Dosage: DOSE 100/200 MG
     Route: 042
  2. MAREVAN [Concomitant]
  3. PREDNISOLONE [Concomitant]
  4. AZATHIOPRINE SODIUM [Concomitant]
  5. AZATHIOPRINE SODIUM [Concomitant]
  6. AZATHIOPRINE SODIUM [Concomitant]
  7. AZATHIOPRINE SODIUM [Concomitant]

REACTIONS (1)
  - TUBERCULOSIS [None]
